FAERS Safety Report 8843471 (Version 1)
Quarter: 2012Q4

REPORT INFORMATION
  Report Type: 
  Country: JP (occurrence: JP)
  Receive Date: 20121016
  Receipt Date: 20121016
  Transmission Date: 20130627
  Serious: Yes (Hospitalization)
  Sender: FDA-Public Use
  Company Number: JP-MYLANLABS-2012S1020677

PATIENT
  Age: 81 Year
  Sex: Male

DRUGS (1)
  1. HYDROXYZINE [Suspect]
     Route: 065

REACTIONS (2)
  - Acute generalised exanthematous pustulosis [Recovered/Resolved with Sequelae]
  - Psoriasis [Not Recovered/Not Resolved]
